FAERS Safety Report 4758035-5 (Version None)
Quarter: 2005Q3

REPORT INFORMATION
  Report Type: 
  Country: None (occurrence: None)
  Receive Date: 20050830
  Receipt Date: 20050815
  Transmission Date: 20060218
  Serious: Yes (Other)
  Sender: FDA-Public Use
  Company Number: S05-USA-03979-01

PATIENT
  Age: 53 Year
  Sex: Female

DRUGS (8)
  1. LEXAPRO [Suspect]
     Indication: DEPRESSION
     Dosage: 10 MG QD PO
     Route: 048
     Dates: start: 20050812
  2. PROGESTERONE [Suspect]
     Indication: HORMONE REPLACEMENT THERAPY
     Dates: start: 20050729, end: 20050812
  3. PROGESTERONE [Suspect]
     Indication: HOT FLUSH
     Dates: start: 20050729, end: 20050812
  4. ESTROGEN [Suspect]
     Indication: HORMONE REPLACEMENT THERAPY
     Dates: start: 20050729, end: 20050812
  5. ESTROGEN [Suspect]
     Indication: HOT FLUSH
     Dates: start: 20050729, end: 20050812
  6. WELLBUTRIN [Concomitant]
  7. LISINOPRIL [Concomitant]
  8. SINGULAIR [Concomitant]

REACTIONS (5)
  - ABDOMINAL PAIN [None]
  - DRY MOUTH [None]
  - INSOMNIA [None]
  - METRORRHAGIA [None]
  - VAGINAL HAEMORRHAGE [None]
